FAERS Safety Report 7331917-6 (Version None)
Quarter: 2011Q1

REPORT INFORMATION
  Report Type: 
  Country: None (occurrence: None)
  Receive Date: 20110304
  Receipt Date: 20090925
  Transmission Date: 20110831
  Serious: No
  Sender: FDA-Public Use
  Company Number: US-PFIZER INC-2009275785

PATIENT
  Sex: Male

DRUGS (2)
  1. CAVERJECT [Suspect]
  2. CAVERJECT IMPULSE [Suspect]

REACTIONS (2)
  - INJECTION SITE HAEMATOMA [None]
  - INJECTION SITE INJURY [None]
